FAERS Safety Report 23689275 (Version 1)
Quarter: 2024Q1

REPORT INFORMATION
  Report Type: Spontaneous
  Country: US (occurrence: US)
  Receive Date: 20240330
  Receipt Date: 20240330
  Transmission Date: 20240410
  Serious: Yes (Death)
  Sender: FDA-Public Use
  Company Number: US-DRL-USA-LIT/USA/24/0004912

PATIENT
  Age: 65 Year
  Sex: Male

DRUGS (4)
  1. DOXORUBICIN [Suspect]
     Active Substance: DOXORUBICIN
     Indication: Sarcoma
     Dosage: CUMULATIVE DOSE OF 150 MG/M2
  2. COLCHICINE [Suspect]
     Active Substance: COLCHICINE
     Indication: Pericarditis
     Dates: start: 20220626
  3. IBUPROFEN [Suspect]
     Active Substance: IBUPROFEN
     Indication: Pericarditis
     Dates: start: 20220626
  4. IFOSFAMIDE [Suspect]
     Active Substance: IFOSFAMIDE
     Indication: Sarcoma

REACTIONS (5)
  - Disease progression [Fatal]
  - Treatment failure [Fatal]
  - Pericarditis [Fatal]
  - Pleurisy [Fatal]
  - Pneumonitis [Fatal]
